FAERS Safety Report 20878998 (Version 2)
Quarter: 2023Q2

REPORT INFORMATION
  Report Type: Other
  Country: JP (occurrence: JP)
  Receive Date: 20220526
  Receipt Date: 20230626
  Transmission Date: 20230722
  Serious: No
  Sender: FDA-Public Use
  Company Number: JP-CHUGAI-2022018686

PATIENT
  Age: 53 Year
  Sex: Male
  Weight: 82 kg

DRUGS (22)
  1. MYCOPHENOLATE MOFETIL [Suspect]
     Active Substance: MYCOPHENOLATE MOFETIL
     Indication: Prophylaxis against transplant rejection
     Dosage: 2000MG/DAY
     Route: 065
     Dates: start: 20160413
  2. RITUXIMAB [Suspect]
     Active Substance: RITUXIMAB
     Indication: Prophylaxis against transplant rejection
     Dosage: 500 MILLIGRAM, SINGLE
     Route: 041
     Dates: start: 20160316
  3. PREDNISOLONE [Suspect]
     Active Substance: PREDNISOLONE
     Indication: Product use in unapproved indication
     Dosage: 5MG/DAY
     Route: 065
     Dates: start: 20160321, end: 20160327
  4. PREDNISOLONE [Suspect]
     Active Substance: PREDNISOLONE
     Dosage: 40MG/DAY
     Route: 048
     Dates: start: 20160405, end: 20160410
  5. PREDNISOLONE [Suspect]
     Active Substance: PREDNISOLONE
     Dosage: 20MG/DAY
     Route: 048
     Dates: start: 20160411, end: 20160413
  6. PREDNISOLONE [Suspect]
     Active Substance: PREDNISOLONE
     Dosage: 40MG/DAY
     Route: 048
     Dates: start: 20160414, end: 20160426
  7. PREDNISOLONE [Suspect]
     Active Substance: PREDNISOLONE
     Dosage: 30MG/DAY
     Route: 048
     Dates: start: 20160427, end: 20160429
  8. PREDNISOLONE [Suspect]
     Active Substance: PREDNISOLONE
     Dosage: 20MG/DAY
     Route: 048
     Dates: start: 20160430, end: 20160616
  9. PREDNISOLONE [Suspect]
     Active Substance: PREDNISOLONE
     Dosage: 10MG/DAY
     Route: 048
     Dates: start: 20160617, end: 20160629
  10. PREDNISOLONE [Suspect]
     Active Substance: PREDNISOLONE
     Dosage: 5MG/DAY
     Route: 048
     Dates: start: 20160630
  11. TACROLIMUS [Suspect]
     Active Substance: TACROLIMUS
     Indication: Product use in unapproved indication
     Dosage: UNK
     Route: 048
     Dates: start: 20160327, end: 20160328
  12. TACROLIMUS [Suspect]
     Active Substance: TACROLIMUS
     Dosage: UNK
     Route: 048
     Dates: start: 20160401
  13. MIZORIBINE [Concomitant]
     Active Substance: MIZORIBINE
     Dosage: 200MG/DAY
     Route: 048
     Dates: start: 20160321, end: 20160413
  14. SULFAMETHOXAZOLE\TRIMETHOPRIM [Concomitant]
     Active Substance: SULFAMETHOXAZOLE\TRIMETHOPRIM
     Indication: Infection prophylaxis
     Dosage: 1 DOSAGE FORM/DAY
     Route: 048
     Dates: start: 20160404, end: 20160415
  15. FUNGIZONE [Concomitant]
     Active Substance: AMPHOTERICIN B
     Indication: Infection prophylaxis
     Dosage: 80MG/DAY
     Route: 048
     Dates: start: 20160321, end: 20160601
  16. VONOPRAZAN FUMARATE [Concomitant]
     Active Substance: VONOPRAZAN FUMARATE
     Indication: Prophylaxis
     Dosage: 10MG/DAY
     Route: 048
     Dates: start: 20160407
  17. URSO [Concomitant]
     Active Substance: URSODIOL
     Indication: Cirrhosis alcoholic
     Dosage: 600MG/DAY
     Route: 048
     Dates: end: 20160626
  18. URSO [Concomitant]
     Active Substance: URSODIOL
     Dosage: 300MG/DAY
     Route: 048
     Dates: start: 20160627
  19. AMINO ACIDS, SOURCE UNSPECIFIED [Concomitant]
     Active Substance: AMINO ACIDS, SOURCE UNSPECIFIED
     Dosage: 12.45G/DAY
     Route: 048
     Dates: end: 20160630
  20. AMPHOTERICIN B [Concomitant]
     Active Substance: AMPHOTERICIN B
     Indication: Infection prophylaxis
     Dosage: 400MG/DAY
     Route: 048
     Dates: start: 20160321, end: 20160925
  21. EDOXABAN TOSYLATE [Concomitant]
     Active Substance: EDOXABAN TOSYLATE
     Indication: Portal vein thrombosis
     Dosage: 60MG/DAY
     Route: 048
     Dates: start: 20161017
  22. GLUFAST OD [Concomitant]
     Indication: Diabetes mellitus
     Dosage: 30MG/DAY
     Route: 048
     Dates: start: 20161028

REACTIONS (1)
  - Cytomegalovirus test positive [Recovering/Resolving]

NARRATIVE: CASE EVENT DATE: 20160414
